FAERS Safety Report 9269439 (Version 1)
Quarter: 2013Q2

REPORT INFORMATION
  Report Type: Spontaneous
  Country: US (occurrence: US)
  Receive Date: 20130503
  Receipt Date: 20130503
  Transmission Date: 20140414
  Serious: No
  Sender: FDA-Public Use
  Company Number: US-BAYER-2013-052920

PATIENT
  Age: 18 Year
  Sex: Female

DRUGS (9)
  1. BETASERON [Suspect]
     Dosage: 0.25 MG, QOD
     Route: 058
  2. ALPRAZOLAM [Concomitant]
     Dosage: 0.5 MG, UNK
  3. NORTRIPTYLIN [Concomitant]
     Dosage: 10 MG, UNK
  4. SINGULAIR [Concomitant]
     Dosage: 10 MG, UNK
  5. VITAMIN B12 [Concomitant]
     Dosage: 500 ?G, UNK
  6. FISH OIL [Concomitant]
  7. VITAMIN E [Concomitant]
  8. TYLENOL PM [Concomitant]
     Dosage: UNK
  9. GABAPENTIN [Concomitant]
     Dosage: 600 MG, UNK

REACTIONS (3)
  - Injection site erythema [Unknown]
  - Injection site swelling [Unknown]
  - Injection site haematoma [Unknown]
